FAERS Safety Report 10013898 (Version 2)
Quarter: 2014Q1

REPORT INFORMATION
  Report Type: Spontaneous
  Country: US (occurrence: US)
  Receive Date: 20140316
  Receipt Date: 20140316
  Transmission Date: 20141002
  Serious: Yes (Hospitalization)
  Sender: FDA-Public Use
  Company Number: US-LUNDBECK-DKLU1095413

PATIENT
  Sex: Female
  Weight: 73 kg

DRUGS (8)
  1. ONFI [Suspect]
     Indication: LENNOX-GASTAUT SYNDROME
     Route: 048
     Dates: start: 20131009
  2. ONFI [Suspect]
     Route: 048
  3. ONFI [Suspect]
     Route: 048
     Dates: end: 20131120
  4. ONFI [Suspect]
     Route: 048
     Dates: end: 20131120
  5. ONFI [Suspect]
     Route: 048
  6. ZONISAMIDE [Concomitant]
     Indication: PRODUCT USED FOR UNKNOWN INDICATION
  7. ZONISAMIDE [Concomitant]
  8. TOPAMAX [Concomitant]
     Indication: PRODUCT USED FOR UNKNOWN INDICATION
     Route: 048

REACTIONS (1)
  - Convulsion [Unknown]
